FAERS Safety Report 15966321 (Version 2)
Quarter: 2019Q1

REPORT INFORMATION
  Report Type: Spontaneous
  Country: US (occurrence: US)
  Receive Date: 20190215
  Receipt Date: 20190313
  Transmission Date: 20190418
  Serious: Yes (Other)
  Sender: FDA-Public Use
  Company Number: US-SUNOVION-2019SUN000569

PATIENT
  Age: 45 Year
  Sex: Male
  Weight: 67.12 kg

DRUGS (6)
  1. APTIOM [Suspect]
     Active Substance: ESLICARBAZEPINE ACETATE
     Indication: SEIZURE
     Dosage: TAPERING DOSE
     Route: 048
  2. ZYPREXA [Concomitant]
     Active Substance: OLANZAPINE
     Indication: ANTISOCIAL PERSONALITY DISORDER
  3. KLONOPIN [Concomitant]
     Active Substance: CLONAZEPAM
  4. APTIOM [Suspect]
     Active Substance: ESLICARBAZEPINE ACETATE
     Indication: EPILEPSY
     Dosage: 1200 MG, QD
     Route: 048
     Dates: start: 20180709
  5. ZYPREXA [Concomitant]
     Active Substance: OLANZAPINE
     Indication: EXHIBITIONISM
  6. ZYPREXA [Concomitant]
     Active Substance: OLANZAPINE
     Indication: BIPOLAR DISORDER

REACTIONS (1)
  - Hyponatraemia [Recovering/Resolving]

NARRATIVE: CASE EVENT DATE: 20181113
